FAERS Safety Report 7601384-3 (Version None)
Quarter: 2011Q3

REPORT INFORMATION
  Report Type: 
  Country: None (occurrence: None)
  Receive Date: 20110711
  Receipt Date: 20110707
  Transmission Date: 20111222
  Serious: Yes (Life-Threatening)
  Sender: FDA-Public Use
  Company Number: FR-ASTRAZENECA-2011SE40482

PATIENT
  Age: 45 Year
  Sex: Female
  Weight: 100 kg

DRUGS (4)
  1. XYLOCAINE [Suspect]
     Route: 042
     Dates: start: 20110601
  2. DIPRIVAN [Suspect]
     Route: 042
     Dates: start: 20110601
  3. SUFENTA PRESERVATIVE FREE [Suspect]
     Route: 042
     Dates: start: 20110601
  4. CELOCURINE [Concomitant]
     Route: 042
     Dates: start: 20110601

REACTIONS (2)
  - HYPERSENSITIVITY [None]
  - CIRCULATORY COLLAPSE [None]
